FAERS Safety Report 6121840-7 (Version None)
Quarter: 2009Q1

REPORT INFORMATION
  Report Type: 
  Country: None (occurrence: None)
  Receive Date: 20090313
  Receipt Date: 20090226
  Transmission Date: 20090719
  Serious: Yes (Life-Threatening, Hospitalization, Other)
  Sender: FDA-Public Use
  Company Number: 2009S1003657

PATIENT
  Age: 79 Year
  Sex: Male
  Weight: 58 kg

DRUGS (11)
  1. TORSEMIDE [Suspect]
     Indication: HYPERTENSION
     Dosage: 10 MG; DAILY; ORAL
     Route: 048
     Dates: end: 20080620
  2. RAMIPRIL [Suspect]
     Indication: HYPERTENSION
     Dosage: 1.25 MG; DAILY; ORAL
     Route: 048
     Dates: end: 20080620
  3. SPIRONOLACTONE [Suspect]
     Indication: CARDIAC FAILURE
     Dosage: 25 MG; DAILY; ORAL
     Route: 048
     Dates: end: 20080601
  4. FALITHROM (PHENPROCOUMON) [Suspect]
     Indication: CARDIAC FAILURE
     Dosage: ORAL
     Route: 048
  5. XIPAMIDE (XIPAMIDE) (5 MG) [Suspect]
     Indication: HYPERTENSION
     Dosage: 5 MG; DAILY; ORAL
     Route: 048
     Dates: end: 20080620
  6. ALLOPURINOL [Concomitant]
  7. MITAMIZOL NATRIUM [Concomitant]
  8. METOCLOPRAMIDE [Concomitant]
  9. PANTOZOL [Concomitant]
  10. RISPERIDONE [Concomitant]
  11. SIMVASTATIN [Concomitant]

REACTIONS (3)
  - DRUG INTERACTION [None]
  - ELECTROLYTE DEPLETION [None]
  - PROTHROMBIN TIME PROLONGED [None]
